FAERS Safety Report 22394509 (Version 4)
Quarter: 2023Q2

REPORT INFORMATION
  Report Type: Spontaneous
  Country: JP (occurrence: JP)
  Receive Date: 20230601
  Receipt Date: 20230629
  Transmission Date: 20230721
  Serious: Yes (Hospitalization, Other)
  Sender: FDA-Public Use
  Company Number: JP-MLMSERVICE-20230524-4302678-1

PATIENT
  Age: 78 Year
  Sex: Female
  Weight: 49 kg

DRUGS (2)
  1. OXALIPLATIN [Suspect]
     Active Substance: OXALIPLATIN
     Indication: Gastric cancer
     Dosage: EIGHT COURSES (130 MG/BODY)
  2. TS-1 [Concomitant]
     Active Substance: GIMERACIL\OTERACIL\TEGAFUR
     Indication: Gastric cancer
     Dosage: EIGHT COURSES (80MG/BODY)

REACTIONS (2)
  - Portal hypertension [Recovered/Resolved]
  - Gastric varices [Recovered/Resolved]
